FAERS Safety Report 9519428 (Version 13)
Quarter: 2016Q2

REPORT INFORMATION
  Report Type: Spontaneous
  Country: US (occurrence: US)
  Receive Date: 20130912
  Receipt Date: 20160406
  Transmission Date: 20160815
  Serious: Yes (Hospitalization, Other)
  Sender: FDA-Public Use
  Company Number: US-GLAXOSMITHKLINE-A1041076A

PATIENT
  Age: 85 Year
  Sex: Female

DRUGS (11)
  1. WARFARIN [Concomitant]
     Active Substance: WARFARIN
  2. LORAZEPAM. [Concomitant]
     Active Substance: LORAZEPAM
  3. NADOLOL. [Concomitant]
     Active Substance: NADOLOL
  4. OMEPRAZOLE. [Concomitant]
     Active Substance: OMEPRAZOLE
  5. RYTHMOL SR [Suspect]
     Active Substance: PROPAFENONE HYDROCHLORIDE
     Indication: ATRIAL FIBRILLATION
     Dosage: 225 MG
     Route: 048
     Dates: start: 2003
  6. RYTHMOL SR [Suspect]
     Active Substance: PROPAFENONE HYDROCHLORIDE
     Dosage: 225 MG
     Route: 048
     Dates: start: 20100630
  7. PROPAFENONE HYDROCHLORIDE SR [Suspect]
     Active Substance: PROPAFENONE HYDROCHLORIDE
     Indication: ATRIAL FIBRILLATION
     Dosage: 225 MG
     Dates: start: 201401, end: 20140420
  8. VESICARE [Concomitant]
     Active Substance: SOLIFENACIN SUCCINATE
  9. TYLENOL # 3 (CODEINE + ACETAMINOPHEN) [Concomitant]
  10. RYTHMOL SR [Suspect]
     Active Substance: PROPAFENONE HYDROCHLORIDE
     Dosage: 225 MG
     Route: 048
     Dates: start: 20140107
  11. COUMADIN [Concomitant]
     Active Substance: WARFARIN SODIUM

REACTIONS (9)
  - Atrial fibrillation [Recovered/Resolved]
  - Drug ineffective [Unknown]
  - Visual acuity reduced [Unknown]
  - Rehabilitation therapy [Recovered/Resolved]
  - Femur fracture [Recovered/Resolved]
  - Walking aid user [Not Recovered/Not Resolved]
  - Fall [Recovered/Resolved]
  - Macular degeneration [Not Recovered/Not Resolved]
  - Blindness [Not Recovered/Not Resolved]

NARRATIVE: CASE EVENT DATE: 2014
